FAERS Safety Report 13038612 (Version 7)
Quarter: 2017Q1

REPORT INFORMATION
  Report Type: Report from Study
  Country: US (occurrence: US)
  Receive Date: 20161219
  Receipt Date: 20170221
  Transmission Date: 20170428
  Serious: Yes (Other)
  Sender: FDA-Public Use
  Company Number: US-SAREPTA THERAPEUTICS, INC-SRP-000023-2016

PATIENT
  Age: 9 Year
  Sex: Male
  Weight: 36.5 kg

DRUGS (6)
  1. ETEPLIRSEN [Suspect]
     Active Substance: ETEPLIRSEN
     Dosage: 1100 MG, SINGLE
     Route: 042
     Dates: start: 20161220, end: 20161220
  2. ETEPLIRSEN [Suspect]
     Active Substance: ETEPLIRSEN
     Dosage: 1100 MG, SINGLE
     Route: 042
     Dates: start: 20170103, end: 20170103
  3. MIRALAX [Concomitant]
     Active Substance: POLYETHYLENE GLYCOL 3350
     Indication: CONSTIPATION
     Dosage: 1 DF, QD
     Route: 048
     Dates: start: 20160108
  4. ETEPLIRSEN [Suspect]
     Active Substance: ETEPLIRSEN
     Indication: DUCHENNE MUSCULAR DYSTROPHY
     Dosage: 1100 MG, WEEKLY
     Route: 042
     Dates: start: 20150407
  5. DEFLAZACORT [Concomitant]
     Active Substance: DEFLAZACORT
     Indication: DUCHENNE MUSCULAR DYSTROPHY
     Dosage: 1.3 MG, QD
     Route: 048
     Dates: start: 20161004
  6. ETEPLIRSEN [Suspect]
     Active Substance: ETEPLIRSEN
     Dosage: 1100 MG, SINGLE
     Route: 042
     Dates: start: 20170106, end: 20170106

REACTIONS (1)
  - Urticaria [Recovered/Resolved]

NARRATIVE: CASE EVENT DATE: 20161207
